FAERS Safety Report 19363982 (Version 2)
Quarter: 2025Q1

REPORT INFORMATION
  Report Type: Spontaneous
  Country: US (occurrence: US)
  Receive Date: 20210603
  Receipt Date: 20250206
  Transmission Date: 20250408
  Serious: Yes (Hospitalization, Other)
  Sender: SANOFI AVENTIS
  Company Number: US-SA-SAC20210601000824

PATIENT
  Age: 46 Year
  Sex: Female
  Weight: 155 kg

DRUGS (6)
  1. DUPIXENT [Suspect]
     Active Substance: DUPILUMAB
     Indication: Nasal polyps
     Route: 058
     Dates: start: 20200421
  2. DUPIXENT [Suspect]
     Active Substance: DUPILUMAB
     Indication: Chronic obstructive pulmonary disease
     Dosage: 300 MG, QOW
     Route: 058
     Dates: start: 20231117
  3. PREDNISONE [Concomitant]
     Active Substance: PREDNISONE
  4. PHENTERMINE [Concomitant]
     Active Substance: PHENTERMINE
  5. SPIRIVA [Concomitant]
     Active Substance: TIOTROPIUM BROMIDE MONOHYDRATE
  6. MONTELUKAST [Concomitant]
     Active Substance: MONTELUKAST

REACTIONS (4)
  - Pulmonary oedema [Recovered/Resolved]
  - Nasal polyps [Unknown]
  - Condition aggravated [Unknown]
  - Asthma [Unknown]

NARRATIVE: CASE EVENT DATE: 20210526
